FAERS Safety Report 7867505-2 (Version None)
Quarter: 2011Q4

REPORT INFORMATION
  Report Type: 
  Country: None (occurrence: None)
  Receive Date: 20111028
  Receipt Date: 20111017
  Transmission Date: 20120403
  Serious: Yes (Other)
  Sender: FDA-Public Use
  Company Number: PHEH2011US06990

PATIENT
  Sex: Female

DRUGS (7)
  1. PREVACID [Concomitant]
  2. ALACTONE [Concomitant]
     Dosage: 25 MG, DAILY
  3. CYMBALTA [Concomitant]
  4. LOTREL [Concomitant]
  5. TEKTURNA HCT [Suspect]
     Indication: BLOOD PRESSURE
     Dosage: 1 DF (300/12.5 MG), DAILY
  6. COREG [Concomitant]
  7. CENTRUM SILVER [Concomitant]

REACTIONS (1)
  - NEOPLASM MALIGNANT [None]
